FAERS Safety Report 8937150 (Version 1)
Quarter: 2012Q4

REPORT INFORMATION
  Report Type: Spontaneous
  Country: US (occurrence: None)
  Receive Date: 20121128
  Receipt Date: 20121128
  Transmission Date: 20130627
  Serious: Yes (Hospitalization)
  Sender: FDA-Public Use
  Company Number: None

PATIENT
  Age: 49 Year
  Sex: Male
  Weight: 128 kg

DRUGS (3)
  1. ALTEPLASE [Suspect]
     Indication: PULMONARY EMBOLISM
     Dosage: 10MG ONCE IV
     Route: 042
  2. ALTEPLASE [Suspect]
     Indication: PULMONARY EMBOLISM
     Dosage: 90MG ONCE IVPB
     Route: 040
  3. IBUPROFEN [Concomitant]

REACTIONS (3)
  - Headache [None]
  - Dyspnoea [None]
  - Haemorrhagic stroke [None]
